FAERS Safety Report 18404479 (Version 1)
Quarter: 2020Q4

REPORT INFORMATION
  Report Type: Other
  Country: SE (occurrence: SE)
  Receive Date: 20201020
  Receipt Date: 20201020
  Transmission Date: 20210114
  Serious: Yes (Hospitalization)
  Sender: FDA-Public Use
  Company Number: SE-DEXPHARM-20200928

PATIENT
  Age: 64 Year
  Sex: Male

DRUGS (6)
  1. BORTEZOMIB. [Suspect]
     Active Substance: BORTEZOMIB
  2. ENOXAPARIN [Suspect]
     Active Substance: ENOXAPARIN
  3. DEXAMETHASONE. [Suspect]
     Active Substance: DEXAMETHASONE
  4. VALACICLOVIR [Suspect]
     Active Substance: VALACYCLOVIR HYDROCHLORIDE
  5. THALIDOMIDE [Suspect]
     Active Substance: THALIDOMIDE
  6. AMLODIPINE [Suspect]
     Active Substance: AMLODIPINE BESYLATE

REACTIONS (1)
  - Acute generalised exanthematous pustulosis [Recovered/Resolved]
